FAERS Safety Report 8985018 (Version 1)
Quarter: 2012Q4

REPORT INFORMATION
  Report Type: 
  Country: US (occurrence: US)
  Receive Date: 20121226
  Receipt Date: 20121226
  Transmission Date: 20130627
  Serious: No
  Sender: FDA-Public Use
  Company Number: US-PFIZER INC-2012323459

PATIENT
  Age: 60 Year
  Sex: Male
  Weight: 70.3 kg

DRUGS (6)
  1. XALKORI [Suspect]
     Indication: LUNG CANCER
     Dosage: 250 mg, 1x/day, every morning
     Route: 048
  2. LIPITOR [Concomitant]
     Dosage: 20 mg, UNK
  3. ZOFRAN [Concomitant]
     Dosage: 8 mg, UNK
  4. PLAVIX [Concomitant]
     Dosage: 75 mg, UNK
  5. FLOMAX [Concomitant]
     Dosage: 0.4 mg, UNK
  6. ASPIRIN [Concomitant]
     Dosage: 81 mg, UNK

REACTIONS (2)
  - Abdominal discomfort [Recovered/Resolved]
  - Dyspepsia [Recovered/Resolved]
